FAERS Safety Report 8955705 (Version 1)
Quarter: 2012Q4

REPORT INFORMATION
  Report Type: Spontaneous
  Country: FR (occurrence: None)
  Receive Date: 20121130
  Receipt Date: 20121130
  Transmission Date: 20130627
  Serious: Yes (Hospitalization)
  Sender: FDA-Public Use
  Company Number: AUR-APL-2012-05078

PATIENT
  Age: 88 Year
  Sex: Female

DRUGS (10)
  1. RAMIPRIL (RAMIPRIL) [Suspect]
     Indication: DRUG USE FOR UNKNOWN INDICATION
     Route: 048
     Dates: end: 20121019
  2. DIFFU K [Suspect]
     Route: 048
     Dates: end: 20121019
  3. ALDACTONE [Suspect]
     Route: 048
     Dates: end: 20121019
  4. FUROSEMIDE (FUROSEMIDE) [Concomitant]
  5. PRAVASTATIN (PRAVASTATIN) [Concomitant]
  6. MOPRAL (OMEPRAZOLE) [Concomitant]
  7. STILNOX (ZOLPIDEM) [Concomitant]
  8. DIGOXIN (DIGOXIN) [Concomitant]
  9. NITRIDERM TTS (GLYCERYL TRINITRATE) [Concomitant]
  10. PREVISCAN (PENTOXIFYLLINE) [Concomitant]

REACTIONS (7)
  - Dyspnoea exertional [None]
  - Chest pain [None]
  - Cardiac failure [None]
  - Skin ulcer [None]
  - Scar [None]
  - Hyperkalaemia [None]
  - Oxygen saturation decreased [None]
